FAERS Safety Report 14878997 (Version 3)
Quarter: 2019Q1

REPORT INFORMATION
  Report Type: Report from Study
  Country: IT (occurrence: IT)
  Receive Date: 20180511
  Receipt Date: 20190301
  Transmission Date: 20190417
  Serious: Yes (Death, Other)
  Sender: FDA-Public Use
  Company Number: IT-ACCORD-066792

PATIENT
  Age: 40 Year
  Sex: Male

DRUGS (6)
  1. LEVOMEPROMAZINE [Suspect]
     Active Substance: LEVOMEPROMAZINE
  2. PREGABALIN. [Suspect]
     Active Substance: PREGABALIN
  3. ALPRAZOLAM. [Suspect]
     Active Substance: ALPRAZOLAM
  4. CLONAZEPAM. [Suspect]
     Active Substance: CLONAZEPAM
  5. MORPHINE [Suspect]
     Active Substance: MORPHINE
  6. MIRTAZAPINE. [Suspect]
     Active Substance: MIRTAZAPINE
     Route: 048

REACTIONS (3)
  - Intentional product misuse [Fatal]
  - Pulmonary haemorrhage [Fatal]
  - Drug abuse [Fatal]

NARRATIVE: CASE EVENT DATE: 201506
